FAERS Safety Report 5406112-8 (Version None)
Quarter: 2007Q3

REPORT INFORMATION
  Report Type: 
  Country: None (occurrence: None)
  Receive Date: 20070806
  Receipt Date: 20070725
  Transmission Date: 20080115
  Serious: Yes (Death)
  Sender: FDA-Public Use
  Company Number: GB-ROCHE-508990

PATIENT
  Age: 51 Year
  Sex: Female
  Weight: 189 kg

DRUGS (1)
  1. XENICAL [Suspect]
     Indication: OBESITY
     Route: 048
     Dates: start: 20070115, end: 20070701

REACTIONS (1)
  - DEATH [None]
